FAERS Safety Report 5964119-6 (Version None)
Quarter: 2008Q4

REPORT INFORMATION
  Report Type: 
  Country: None (occurrence: None)
  Receive Date: 20081121
  Receipt Date: 20081121
  Transmission Date: 20090506
  Serious: Yes (Other)
  Sender: FDA-Public Use
  Company Number: None

PATIENT
  Age: 47 Year
  Sex: Female
  Weight: 65.7716 kg

DRUGS (2)
  1. PAXIL [Suspect]
     Indication: MENOPAUSE
     Dosage: 1 TAB DAILY PO
     Route: 048
     Dates: start: 19991108, end: 20081108
  2. PAXIL [Suspect]
     Indication: PREMENSTRUAL SYNDROME
     Dosage: 1 TAB DAILY PO
     Route: 048
     Dates: start: 19991108, end: 20081108

REACTIONS (5)
  - ACTIVITIES OF DAILY LIVING IMPAIRED [None]
  - ECONOMIC PROBLEM [None]
  - EMOTIONAL DISORDER [None]
  - GENERAL PHYSICAL HEALTH DETERIORATION [None]
  - WITHDRAWAL SYNDROME [None]
